FAERS Safety Report 24861261 (Version 7)
Quarter: 2025Q3

REPORT INFORMATION
  Report Type: Report from Study
  Country: CA (occurrence: CA)
  Receive Date: 20250120
  Receipt Date: 20250911
  Transmission Date: 20251021
  Serious: Yes (Other)
  Sender: TAKEDA
  Company Number: CA-TAKEDA-2025TUS004580

PATIENT
  Sex: Female

DRUGS (9)
  1. VEDOLIZUMAB [Suspect]
     Active Substance: VEDOLIZUMAB
     Indication: Colitis ulcerative
     Dates: start: 20241204, end: 20250312
  2. VEDOLIZUMAB [Suspect]
     Active Substance: VEDOLIZUMAB
     Indication: Colitis ulcerative
     Dosage: 108 MILLIGRAM, Q2WEEKS
  3. BUDESONIDE [Concomitant]
     Active Substance: BUDESONIDE
  4. CLONAZEPAM [Concomitant]
     Active Substance: CLONAZEPAM
  5. VIIBRYD [Concomitant]
     Active Substance: VILAZODONE HYDROCHLORIDE
  6. PREGABALIN [Concomitant]
     Active Substance: PREGABALIN
  7. LOMOTIL [Concomitant]
     Active Substance: ATROPINE SULFATE\DIPHENOXYLATE HYDROCHLORIDE
  8. DAYVIGO [Concomitant]
     Active Substance: LEMBOREXANT
  9. ELETRIPTAN [Concomitant]
     Active Substance: ELETRIPTAN

REACTIONS (7)
  - Colitis ulcerative [Unknown]
  - Bone pain [Unknown]
  - Restless legs syndrome [Unknown]
  - Anxiety [Unknown]
  - Drug ineffective [Unknown]
  - Arthralgia [Unknown]
  - Headache [Unknown]
